FAERS Safety Report 15719041 (Version 2)
Quarter: 2018Q4

REPORT INFORMATION
  Report Type: Spontaneous
  Country: GB (occurrence: GB)
  Receive Date: 20181213
  Receipt Date: 20181214
  Transmission Date: 20190205
  Serious: Yes (Death)
  Sender: FDA-Public Use
  Company Number: GB-JNJFOC-20181213965

PATIENT
  Age: 74 Year
  Sex: Female

DRUGS (2)
  1. CYCLIMORPH (CYCLIZINE\MORPHINE TARTRATE) [Suspect]
     Active Substance: CYCLIZINE\MORPHINE TARTRATE
     Indication: PRODUCT USED FOR UNKNOWN INDICATION
     Route: 065
     Dates: start: 19881103, end: 19881103
  2. FENTANYL. [Suspect]
     Active Substance: FENTANYL
     Indication: PRODUCT USED FOR UNKNOWN INDICATION
     Route: 065
     Dates: start: 19881103

REACTIONS (4)
  - Pulmonary oedema [Fatal]
  - Potentiating drug interaction [Unknown]
  - Brain oedema [Fatal]
  - Hypoxia [Unknown]

NARRATIVE: CASE EVENT DATE: 19881103
